FAERS Safety Report 15398523 (Version 1)
Quarter: 2018Q3

REPORT INFORMATION
  Report Type: Spontaneous
  Country: US (occurrence: US)
  Receive Date: 20180913
  Receipt Date: 20180913
  Transmission Date: 20181010
  Serious: Yes (Other)
  Sender: FDA-Public Use
  Company Number: None

PATIENT
  Age: 27 Year
  Sex: Female
  Weight: 81 kg

DRUGS (3)
  1. TRINTELLIX [Suspect]
     Active Substance: VORTIOXETINE HYDROBROMIDE
     Indication: ANTIDEPRESSANT THERAPY
     Dosage: ?          QUANTITY:1 TABLET(S);?
     Route: 048
     Dates: start: 20180910, end: 20180912
  2. XANAX [Concomitant]
     Active Substance: ALPRAZOLAM
  3. TRAZODONE [Concomitant]
     Active Substance: TRAZODONE HYDROCHLORIDE

REACTIONS (8)
  - Mental disorder [None]
  - Vision blurred [None]
  - Suicidal ideation [None]
  - Dizziness [None]
  - Mania [None]
  - Anxiety [None]
  - Pain [None]
  - Visual impairment [None]

NARRATIVE: CASE EVENT DATE: 20180912
